FAERS Safety Report 19217824 (Version 1)
Quarter: 2021Q2

REPORT INFORMATION
  Report Type: Spontaneous
  Country: PT (occurrence: PT)
  Receive Date: 20210505
  Receipt Date: 20210505
  Transmission Date: 20210717
  Serious: Yes (Other)
  Sender: FDA-Public Use
  Company Number: PT-TEVA-2021-PT-1906915

PATIENT
  Age: 83 Year
  Sex: Female
  Weight: 60 kg

DRUGS (8)
  1. MICARDIS [Concomitant]
     Active Substance: TELMISARTAN
     Route: 048
  2. LASIX [Concomitant]
     Active Substance: FUROSEMIDE
     Dosage: 20 MG
     Route: 048
  3. LERCANIDIPINE [Concomitant]
     Active Substance: LERCANIDIPINE
     Route: 048
  4. SIMVASTATIN. [Concomitant]
     Active Substance: SIMVASTATIN
     Route: 048
  5. ALECENSA [Interacting]
     Active Substance: ALECTINIB HYDROCHLORIDE
     Indication: LUNG ADENOCARCINOMA
     Dosage: 600MG 12/12H , UNIT DOSE : 1200 MG
     Route: 048
     Dates: start: 20210222, end: 20210322
  6. ATENOLOL. [Suspect]
     Active Substance: ATENOLOL
     Dosage: 50 MG
     Route: 048
  7. ALDACTONE [Concomitant]
     Active Substance: SPIRONOLACTONE
     Route: 048
  8. ELIQUIS [Concomitant]
     Active Substance: APIXABAN
     Route: 048

REACTIONS (7)
  - Constipation [Not Recovered/Not Resolved]
  - Bradycardia [Recovered/Resolved]
  - Blood creatine phosphokinase increased [Recovering/Resolving]
  - Creatinine renal clearance decreased [Recovering/Resolving]
  - Drug interaction [Unknown]
  - Hyponatraemia [Recovered/Resolved]
  - Blood creatinine increased [Recovering/Resolving]

NARRATIVE: CASE EVENT DATE: 20210322
